FAERS Safety Report 4601885-6 (Version None)
Quarter: 2005Q1

REPORT INFORMATION
  Report Type: 
  Country: None (occurrence: None)
  Receive Date: 20050201
  Receipt Date: 20040113
  Transmission Date: 20050727
  Serious: Yes (Hospitalization)
  Sender: FDA-Public Use
  Company Number: 200411046BWH

PATIENT
  Sex: 0

DRUGS (1)
  1. AVELOX [Suspect]

REACTIONS (2)
  - HYPERSENSITIVITY [None]
  - OEDEMA MOUTH [None]
